FAERS Safety Report 5861424-9 (Version None)
Quarter: 2008Q3

REPORT INFORMATION
  Report Type: 
  Country: None (occurrence: None)
  Receive Date: 20080827
  Receipt Date: 20080417
  Transmission Date: 20090109
  Serious: No
  Sender: FDA-Public Use
  Company Number: US-ABBOTT-08P-163-0447816-00

PATIENT
  Sex: Female

DRUGS (2)
  1. NIASPAN [Suspect]
     Indication: DRUG USE FOR UNKNOWN INDICATION
     Route: 048
     Dates: start: 20080416
  2. MOXIFLOXACIN HYDROCHLORIDE [Suspect]
     Indication: RESPIRATORY TRACT INFECTION
     Route: 048
     Dates: start: 20080416

REACTIONS (12)
  - DIZZINESS [None]
  - DYSPNOEA [None]
  - EAR CONGESTION [None]
  - ERYTHEMA [None]
  - FATIGUE [None]
  - FEELING ABNORMAL [None]
  - HEADACHE [None]
  - NAUSEA [None]
  - OROPHARYNGEAL PAIN [None]
  - PALPITATIONS [None]
  - PRURITUS [None]
  - SKIN BURNING SENSATION [None]
